FAERS Safety Report 8876303 (Version 1)
Quarter: 2012Q4

REPORT INFORMATION
  Report Type: 
  Country: NL (occurrence: NL)
  Receive Date: 20121023
  Receipt Date: 20121023
  Transmission Date: 20130627
  Serious: Yes (Hospitalization)
  Sender: FDA-Public Use
  Company Number: NL-B.I. PHARMACEUTICALS,INC./RIDGEFIELD-2012-NL-00437NL

PATIENT
  Sex: Female

DRUGS (4)
  1. ATROVENT [Suspect]
     Indication: CHRONIC OBSTRUCTIVE PULMONARY DISEASE
  2. PREDNISON [Concomitant]
     Dosage: 10 mg
  3. FLIXOTIDE [Concomitant]
  4. FORADIL [Concomitant]

REACTIONS (1)
  - Arrhythmia [Unknown]
